FAERS Safety Report 17836089 (Version 1)
Quarter: 2020Q2

REPORT INFORMATION
  Report Type: Spontaneous
  Country: AU (occurrence: AU)
  Receive Date: 20200528
  Receipt Date: 20200528
  Transmission Date: 20200714
  Serious: Yes (Other)
  Sender: FDA-Public Use
  Company Number: AU-PFIZER INC-2020209237

PATIENT
  Age: 44 Year
  Sex: Male

DRUGS (2)
  1. DEPO-MEDROL [Suspect]
     Active Substance: METHYLPREDNISOLONE ACETATE
     Indication: MUSCULOSKELETAL PAIN
     Dosage: UNK
  2. DEPO-PROVERA [Suspect]
     Active Substance: MEDROXYPROGESTERONE ACETATE
     Indication: MUSCULOSKELETAL PAIN
     Dosage: 112 MG (THREE QUARTERS OF THE 1 ML VOLUME)
     Route: 014
     Dates: start: 2015

REACTIONS (3)
  - Erectile dysfunction [Unknown]
  - Loss of libido [Unknown]
  - Wrong product administered [Unknown]

NARRATIVE: CASE EVENT DATE: 2015
